FAERS Safety Report 20263320 (Version 1)
Quarter: 2021Q4

REPORT INFORMATION
  Report Type: Report from Study
  Country: CA (occurrence: CA)
  Receive Date: 20211231
  Receipt Date: 20211231
  Transmission Date: 20220303
  Serious: Yes (Death, Other)
  Sender: FDA-Public Use
  Company Number: CA-TAKEDA-2021TUS083146

PATIENT
  Age: 61 Year
  Sex: Male

DRUGS (2)
  1. VEDOLIZUMAB [Suspect]
     Active Substance: VEDOLIZUMAB
     Indication: Colitis ulcerative
     Dosage: 300 MILLIGRAM
     Route: 042
     Dates: start: 20211119
  2. PENTASA [Concomitant]
     Active Substance: MESALAMINE
     Dosage: 2 GRAM
     Dates: start: 20210501

REACTIONS (1)
  - Death [Fatal]

NARRATIVE: CASE EVENT DATE: 20211224
